FAERS Safety Report 4636974-3 (Version None)
Quarter: 2005Q2

REPORT INFORMATION
  Report Type: 
  Country: None (occurrence: None)
  Receive Date: 20050414
  Receipt Date: 20050401
  Transmission Date: 20051028
  Serious: Yes (Hospitalization)
  Sender: FDA-Public Use
  Company Number: US015010

PATIENT
  Age: 49 Year
  Sex: Male
  Weight: 97.0698 kg

DRUGS (7)
  1. GABITRIL [Suspect]
     Indication: BACK PAIN
     Dosage: 4 MG TID; ORAL
     Route: 048
     Dates: start: 20040401, end: 20040801
  2. GABITRIL [Suspect]
     Indication: BACK PAIN
     Dosage: 12 MG TID; ORAL
     Route: 048
     Dates: start: 20040801, end: 20050311
  3. GABITRIL [Suspect]
     Indication: BACK PAIN
     Dosage: 12 MG QHS; ORAL
     Route: 048
     Dates: start: 20050312, end: 20050316
  4. GABITRIL [Suspect]
     Indication: BACK PAIN
     Dosage: 6 MG QHS; ORAL
     Route: 048
     Dates: start: 20050317, end: 20050318
  5. SEROQUEL [Concomitant]
  6. CLONAZEPAM [Concomitant]
  7. SERTRALINE [Concomitant]

REACTIONS (3)
  - APHASIA [None]
  - CONVULSION [None]
  - LOSS OF CONSCIOUSNESS [None]
